FAERS Safety Report 24640445 (Version 3)
Quarter: 2024Q4

REPORT INFORMATION
  Report Type: Spontaneous
  Country: JP (occurrence: JP)
  Receive Date: 20241120
  Receipt Date: 20241211
  Transmission Date: 20250114
  Serious: Yes (Hospitalization, Other)
  Sender: GLAXOSMITHKLINE
  Company Number: JP-GSKJP-JP2024JPN141900AA

PATIENT

DRUGS (6)
  1. DAPRODUSTAT [Suspect]
     Active Substance: DAPRODUSTAT
     Indication: Nephrogenic anaemia
     Dosage: 2 MG, 1D, AFTER BREAKFAST
     Route: 048
     Dates: start: 20240719
  2. CALCIUM POLYSTYRENE SULFONATE [Suspect]
     Active Substance: CALCIUM POLYSTYRENE SULFONATE
     Dosage: 2 DF, MORNING AND EVENING
     Dates: start: 20240913
  3. SODIUM BICARBONATE [Concomitant]
     Active Substance: SODIUM BICARBONATE
     Dosage: 1 DF, TID, AFTER EACH MEAL
     Dates: start: 20240719
  4. LIVALO [Concomitant]
     Active Substance: PITAVASTATIN CALCIUM
     Dosage: 2 MG
  5. Febric [Concomitant]
     Dosage: 10 MG, MORNING
  6. NIFEDIPINE [Concomitant]
     Active Substance: NIFEDIPINE
     Dosage: 1 DF, MORNING

REACTIONS (4)
  - Intestinal perforation [Unknown]
  - Constipation [Unknown]
  - Abdominal pain [Unknown]
  - Surgery [Unknown]

NARRATIVE: CASE EVENT DATE: 20241001
